FAERS Safety Report 24115890 (Version 2)
Quarter: 2025Q1

REPORT INFORMATION
  Report Type: Spontaneous
  Country: US (occurrence: US)
  Receive Date: 20240721
  Receipt Date: 20250115
  Transmission Date: 20250408
  Serious: Yes (Hospitalization, Other)
  Sender: BLUEPRINT MEDICINES
  Company Number: US-Blueprint Medicines Corporation-3447

PATIENT
  Age: 29 Year
  Sex: Female

DRUGS (6)
  1. AYVAKIT [Suspect]
     Active Substance: AVAPRITINIB
     Indication: Mast cell activation syndrome
     Route: 065
     Dates: start: 20240130
  2. AYVAKIT [Suspect]
     Active Substance: AVAPRITINIB
     Indication: Systemic mastocytosis
     Route: 065
     Dates: start: 20240130
  3. AYVAKIT [Suspect]
     Active Substance: AVAPRITINIB
     Indication: Immune system disorder
     Route: 065
     Dates: start: 202401
  4. Symbalta [Concomitant]
     Indication: Seizure
     Route: 065
  5. Symbalta [Concomitant]
     Indication: Seizure
  6. TOVIAZ [Concomitant]
     Active Substance: FESOTERODINE FUMARATE
     Indication: Product used for unknown indication
     Route: 065

REACTIONS (3)
  - Seizure [Unknown]
  - Mental disorder [Unknown]
  - Seizure cluster [Unknown]

NARRATIVE: CASE EVENT DATE: 20250101
